FAERS Safety Report 4288645-3 (Version None)
Quarter: 2004Q1

REPORT INFORMATION
  Report Type: 
  Country: None (occurrence: None)
  Receive Date: 20040205
  Receipt Date: 20040113
  Transmission Date: 20041129
  Serious: Yes (Other)
  Sender: FDA-Public Use
  Company Number: 200331014BWH

PATIENT
  Age: 38 Year
  Sex: Male
  Weight: 90.7194 kg

DRUGS (2)
  1. LEVITRA [Suspect]
     Indication: ERECTILE DYSFUNCTION
     Dosage: 10 MG, TOTAL DAILY, ORAL
     Route: 048
     Dates: start: 20031226
  2. VIAGRA [Concomitant]

REACTIONS (2)
  - BLOOD URINE PRESENT [None]
  - DYSURIA [None]
